FAERS Safety Report 6410990-3 (Version None)
Quarter: 2009Q4

REPORT INFORMATION
  Report Type: 
  Country: None (occurrence: None)
  Receive Date: 20091020
  Receipt Date: 20091020
  Transmission Date: 20100525
  Serious: Yes (Disabling)
  Sender: FDA-Public Use
  Company Number: None

PATIENT
  Age: 53 Year
  Sex: Female
  Weight: 112.0385 kg

DRUGS (1)
  1. SULFASALAZINE [Suspect]
     Indication: INFLAMMATION
     Dosage: 2 X DAILY (2X) 500MG 2X DAILY BY MOUTH
     Route: 048
     Dates: start: 20090825, end: 20090919

REACTIONS (19)
  - ACTIVITIES OF DAILY LIVING IMPAIRED [None]
  - ARTHRALGIA [None]
  - ARTHROPATHY [None]
  - BACK PAIN [None]
  - DECREASED APPETITE [None]
  - DIARRHOEA [None]
  - DRUG INEFFECTIVE [None]
  - EYE IRRITATION [None]
  - FALL [None]
  - JOINT CREPITATION [None]
  - JOINT SWELLING [None]
  - MUSCLE SPASMS [None]
  - NAUSEA [None]
  - OROPHARYNGEAL PAIN [None]
  - PAIN IN JAW [None]
  - PARAESTHESIA [None]
  - STOMATITIS [None]
  - SWELLING FACE [None]
  - WHEELCHAIR USER [None]
